FAERS Safety Report 6977956-6 (Version None)
Quarter: 2010Q3

REPORT INFORMATION
  Report Type: 
  Country: None (occurrence: None)
  Receive Date: 20100913
  Receipt Date: 20100901
  Transmission Date: 20110219
  Serious: Yes (Other)
  Sender: FDA-Public Use
  Company Number: US-PFIZER INC-2010111279

PATIENT
  Sex: Female

DRUGS (2)
  1. GEODON [Suspect]
     Dosage: UNK
  2. LAMICTAL [Concomitant]
     Dosage: UNK

REACTIONS (2)
  - GALACTORRHOEA [None]
  - PITUITARY ENLARGEMENT [None]
